FAERS Safety Report 4609612-3 (Version None)
Quarter: 2005Q1

REPORT INFORMATION
  Report Type: 
  Country: None (occurrence: None)
  Receive Date: 20050316
  Receipt Date: 20050307
  Transmission Date: 20050727
  Serious: Yes (Disabling)
  Sender: FDA-Public Use
  Company Number: 200512043GDDC

PATIENT
  Age: 19 Year
  Sex: Male
  Weight: 67.5 kg

DRUGS (8)
  1. DOCETAXEL [Suspect]
     Indication: METASTASIS
     Route: 042
     Dates: start: 20041125, end: 20050216
  2. DOCETAXEL [Suspect]
     Indication: NEOPLASM MALIGNANT
     Route: 042
     Dates: start: 20041125, end: 20050216
  3. CISPLATIN [Suspect]
     Indication: METASTASIS
     Route: 042
     Dates: start: 20041125, end: 20050216
  4. CISPLATIN [Suspect]
     Indication: NEOPLASM MALIGNANT
     Route: 042
     Dates: start: 20041125, end: 20050216
  5. RADIOTHERAPY [Suspect]
     Indication: NEOPLASM MALIGNANT
     Dosage: DOSE: UNK
  6. DURAGESIC-100 [Suspect]
     Indication: PAIN
     Dates: start: 20050211
  7. TRAMADOL HCL [Suspect]
     Indication: PAIN
     Route: 048
     Dates: start: 20050201
  8. DEXAMETHASONE [Concomitant]
     Indication: PREMEDICATION

REACTIONS (4)
  - INFLAMMATION [None]
  - PERFORMANCE STATUS DECREASED [None]
  - PUPILLARY DISORDER [None]
  - VITH NERVE DISORDER [None]
